FAERS Safety Report 24689903 (Version 1)
Quarter: 2024Q4

REPORT INFORMATION
  Report Type: Spontaneous
  Country: BR (occurrence: BR)
  Receive Date: 20241203
  Receipt Date: 20241203
  Transmission Date: 20250115
  Serious: Yes (Other)
  Sender: ASTELLAS
  Company Number: BR-ADIUM-BR-0838-20241121

PATIENT
  Age: 75 Year
  Sex: Female

DRUGS (1)
  1. ENFORTUMAB VEDOTIN [Suspect]
     Active Substance: ENFORTUMAB VEDOTIN
     Indication: Product used for unknown indication
     Dosage: UNKNOWN DOSE, ROUTE AND FREQUENCY.
     Route: 050

REACTIONS (4)
  - Pain of skin [Recovering/Resolving]
  - Skin burning sensation [Recovering/Resolving]
  - Skin injury [Recovering/Resolving]
  - Dermatitis bullous [Recovering/Resolving]
